FAERS Safety Report 8515930-9 (Version None)
Quarter: 2012Q3

REPORT INFORMATION
  Report Type: 
  Country: None (occurrence: None)
  Receive Date: 20120705
  Receipt Date: 20120624
  Transmission Date: 20120928
  Serious: Yes (Other)
  Sender: FDA-Public Use
  Company Number: DSA_58138_2012

PATIENT
  Sex: Female

DRUGS (4)
  1. BUPROPION HCL [Suspect]
     Indication: PRODUCT USED FOR UNKNOWN INDICATION
     Dosage: (2250 MG, NOT THE PRESCRIBED AMOUNT ORAL)
     Route: 048
     Dates: start: 20120624, end: 20120624
  2. EHTANOL (RED WINE - ETHANOL) [Suspect]
     Indication: PRODUCT USED FOR UNKNOWN INDICATION
     Dosage: (3 - 4 GLASSES ORAL)
     Route: 048
     Dates: start: 20120624, end: 20120624
  3. SEROQUEL XR [Suspect]
     Indication: PRODUCT USED FOR UNKNOWN INDICATION
     Dosage: (1500 MG, NOT THE PRESCRIBED AMOUNT ORAL)
     Route: 048
     Dates: start: 20120624, end: 20120624
  4. VENLAFAXINE [Suspect]
     Indication: PRODUCT USED FOR UNKNOWN INDICATION
     Dosage: (4500 MG, NOT THE PRESCRIBED AMOUNT ORAL)
     Route: 048
     Dates: start: 20120624, end: 20120624

REACTIONS (5)
  - ALCOHOL USE [None]
  - SUICIDE ATTEMPT [None]
  - GASTROINTESTINAL SOUNDS ABNORMAL [None]
  - MULTIPLE DRUG OVERDOSE INTENTIONAL [None]
  - GAIT DISTURBANCE [None]
